FAERS Safety Report 15266348 (Version 2)
Quarter: 2018Q3

REPORT INFORMATION
  Report Type: Spontaneous
  Country: DE (occurrence: DE)
  Receive Date: 20180810
  Receipt Date: 20180912
  Transmission Date: 20181010
  Serious: Yes (Hospitalization, Other)
  Sender: FDA-Public Use
  Company Number: DE-PFIZER INC-2018319791

PATIENT
  Age: 58 Year
  Sex: Female

DRUGS (2)
  1. DRONABINOL. [Concomitant]
     Active Substance: DRONABINOL
     Dosage: UNK
  2. GABAPENTIN. [Suspect]
     Active Substance: GABAPENTIN
     Dosage: 900 MG, DAILY

REACTIONS (4)
  - Foreign body in eye [Unknown]
  - Eyelid function disorder [Unknown]
  - Eye pain [Unknown]
  - Ocular hyperaemia [Unknown]
